FAERS Safety Report 7137145-1 (Version None)
Quarter: 2010Q4

REPORT INFORMATION
  Report Type: 
  Country: None (occurrence: None)
  Receive Date: 20101206
  Receipt Date: 20101123
  Transmission Date: 20110411
  Serious: Yes (Hospitalization, Other)
  Sender: FDA-Public Use
  Company Number: US-JNJFOC-20101201171

PATIENT
  Sex: Female
  Weight: 9.4 kg

DRUGS (1)
  1. HALOPERIDOL [Suspect]
     Indication: DELIRIUM
     Route: 042

REACTIONS (3)
  - INCORRECT ROUTE OF DRUG ADMINISTRATION [None]
  - OFF LABEL USE [None]
  - STEREOTYPY [None]
